FAERS Safety Report 14937740 (Version 1)
Quarter: 2018Q2

REPORT INFORMATION
  Report Type: Spontaneous
  Country: GB (occurrence: GB)
  Receive Date: 20180525
  Receipt Date: 20180525
  Transmission Date: 20180711
  Serious: Yes (Hospitalization, Other)
  Sender: FDA-Public Use
  Company Number: GB-BIOGEN-2018BI00581327

PATIENT

DRUGS (1)
  1. FAMPYRA [Suspect]
     Active Substance: DALFAMPRIDINE
     Indication: PRODUCT USED FOR UNKNOWN INDICATION
     Dosage: ON MEDICATION FOR TWO YEARS AT THE TIME OF REPORT
     Route: 065

REACTIONS (4)
  - Motor dysfunction [Not Recovered/Not Resolved]
  - Seizure [Not Recovered/Not Resolved]
  - Diplegia [Not Recovered/Not Resolved]
  - Drug ineffective [Unknown]
